FAERS Safety Report 23799746 (Version 1)
Quarter: 2024Q2

REPORT INFORMATION
  Report Type: Spontaneous
  Country: US (occurrence: None)
  Receive Date: 20240429
  Receipt Date: 20240429
  Transmission Date: 20240716
  Serious: No
  Sender: FDA-Public Use
  Company Number: None

PATIENT
  Age: 52 Year
  Sex: Female
  Weight: 67 kg

DRUGS (3)
  1. DASATINIB [Suspect]
     Active Substance: DASATINIB
     Dates: end: 20220101
  2. METHOTREXATE [Suspect]
     Active Substance: METHOTREXATE
     Dates: end: 20211230
  3. PREDNISONE [Suspect]
     Active Substance: PREDNISONE
     Dates: end: 20211230

REACTIONS (3)
  - Neutropenia [None]
  - Lymphocyte count decreased [None]
  - Anaemia [None]

NARRATIVE: CASE EVENT DATE: 20211230
